FAERS Safety Report 4657525-3 (Version None)
Quarter: 2005Q2

REPORT INFORMATION
  Report Type: 
  Country: None (occurrence: None)
  Receive Date: 20050405
  Receipt Date: 20041007
  Transmission Date: 20051028
  Serious: Yes (Other)
  Sender: FDA-Public Use
  Company Number: 2004076529

PATIENT

DRUGS (1)
  1. GEODON [Suspect]
     Indication: ILL-DEFINED DISORDER
     Dosage: 160 MG (80MG,2 IN 1 D),ORAL
     Route: 048
     Dates: start: 20041001

REACTIONS (1)
  - EXTRAPYRAMIDAL DISORDER [None]
